FAERS Safety Report 5558502-0 (Version None)
Quarter: 2007Q4

REPORT INFORMATION
  Report Type: 
  Country: None (occurrence: None)
  Receive Date: 20071214
  Receipt Date: 20071204
  Transmission Date: 20080405
  Serious: Yes (Other)
  Sender: FDA-Public Use
  Company Number: DE-PFIZER INC-2007102439

PATIENT
  Age: 61 Year
  Sex: Male

DRUGS (3)
  1. LYRICA [Suspect]
     Indication: PANIC ATTACK
     Route: 048
  2. LYRICA [Suspect]
     Indication: ANXIETY
  3. TAXILAN [Concomitant]

REACTIONS (1)
  - BLOOD GLUCOSE INCREASED [None]
